FAERS Safety Report 16170556 (Version 3)
Quarter: 2019Q3

REPORT INFORMATION
  Report Type: Spontaneous
  Country: JP (occurrence: JP)
  Receive Date: 20190408
  Receipt Date: 20190723
  Transmission Date: 20191004
  Serious: Yes (Hospitalization, Other)
  Sender: FDA-Public Use
  Company Number: JP-PFIZER INC-2019047313

PATIENT
  Age: 79 Year
  Sex: Female
  Weight: 35 kg

DRUGS (9)
  1. CYMBALTA [Suspect]
     Active Substance: DULOXETINE HYDROCHLORIDE
     Dosage: 40 MG, 1X/DAY
     Route: 048
     Dates: start: 20181214, end: 20190112
  2. CYMBALTA [Suspect]
     Active Substance: DULOXETINE HYDROCHLORIDE
     Dosage: 20 MG, 1X/DAY
     Route: 048
     Dates: start: 20181121, end: 20181127
  3. LYRICA [Suspect]
     Active Substance: PREGABALIN
     Indication: PAIN IN EXTREMITY
     Dosage: 25 MG, 1X/DAY
     Route: 048
     Dates: start: 20181126, end: 20181127
  4. LYRICA [Suspect]
     Active Substance: PREGABALIN
     Dosage: 25 MG, 2X/DAY
     Route: 048
     Dates: start: 20181128, end: 20181129
  5. ONETRAM [Suspect]
     Active Substance: TRAMADOL HYDROCHLORIDE
     Indication: BACK PAIN
     Dosage: 100 MG, DAILY
     Route: 048
     Dates: start: 20181212, end: 20181216
  6. CYMBALTA [Suspect]
     Active Substance: DULOXETINE HYDROCHLORIDE
     Dosage: 30 MG, 1X/DAY
     Route: 048
     Dates: start: 20181128, end: 20181213
  7. LYRICA [Suspect]
     Active Substance: PREGABALIN
     Dosage: 75 MG, 2X/DAY
     Route: 048
     Dates: start: 20181204
  8. LYRICA [Suspect]
     Active Substance: PREGABALIN
     Dosage: 50 MG, 2X/DAY
     Route: 048
     Dates: start: 20181130, end: 20181203
  9. ONETRAM [Suspect]
     Active Substance: TRAMADOL HYDROCHLORIDE
     Indication: PAIN IN EXTREMITY
     Dosage: 200 MG, DAILY
     Route: 048
     Dates: start: 20181217, end: 20190119

REACTIONS (14)
  - Pneumocystis jirovecii pneumonia [Recovered/Resolved]
  - Spondylitis [Not Recovered/Not Resolved]
  - Speech disorder [Recovered/Resolved]
  - Decubitus ulcer [Unknown]
  - Diverticulum intestinal [Unknown]
  - Spinal osteoarthritis [Unknown]
  - Restlessness [Recovered/Resolved]
  - Psoas abscess [Recovered/Resolved]
  - Delirium [Recovered/Resolved]
  - Cardiac failure [Unknown]
  - Cardiomegaly [Recovering/Resolving]
  - Lymphadenopathy mediastinal [Recovered/Resolved]
  - Fungal infection [Unknown]
  - Pleural effusion [Recovering/Resolving]

NARRATIVE: CASE EVENT DATE: 20181127
